FAERS Safety Report 23324846 (Version 1)
Quarter: 2023Q4

REPORT INFORMATION
  Report Type: Spontaneous
  Country: US (occurrence: US)
  Receive Date: 20231221
  Receipt Date: 20231221
  Transmission Date: 20240110
  Serious: No
  Sender: FDA-Public Use
  Company Number: US-OPELLA-2023OHG018629

PATIENT
  Sex: Female

DRUGS (1)
  1. CORTIZONE-10 SOOTHING ALOE CREME [Suspect]
     Active Substance: HYDROCORTISONE

REACTIONS (2)
  - Exposure during pregnancy [Unknown]
  - No adverse event [Unknown]
